FAERS Safety Report 23077267 (Version 2)
Quarter: 2023Q4

REPORT INFORMATION
  Report Type: Spontaneous
  Country: CA (occurrence: CA)
  Receive Date: 20231018
  Receipt Date: 20231026
  Transmission Date: 20240109
  Serious: Yes (Life-Threatening, Hospitalization, Other)
  Sender: FDA-Public Use
  Company Number: CA-002147023-NVSC2023CA027550

PATIENT
  Age: 35 Year
  Sex: Female

DRUGS (76)
  1. ACETAMINOPHEN\CODEINE PHOSPHATE [Suspect]
     Active Substance: ACETAMINOPHEN\CODEINE PHOSPHATE
     Indication: Body temperature increased
     Dosage: 1 G
     Route: 048
  2. ACETAMINOPHEN\CODEINE PHOSPHATE [Suspect]
     Active Substance: ACETAMINOPHEN\CODEINE PHOSPHATE
     Indication: Pyrexia
     Dosage: UNK
     Route: 048
  3. ACETAMINOPHEN\CODEINE PHOSPHATE [Suspect]
     Active Substance: ACETAMINOPHEN\CODEINE PHOSPHATE
     Dosage: UNK
     Route: 065
  4. DIMENHYDRINATE [Suspect]
     Active Substance: DIMENHYDRINATE
     Indication: Hyperemesis gravidarum
     Dosage: 50 MG, Q4H
     Route: 042
  5. DIMENHYDRINATE [Suspect]
     Active Substance: DIMENHYDRINATE
     Dosage: 50 MG, Q4H
     Route: 042
  6. DIMENHYDRINATE [Suspect]
     Active Substance: DIMENHYDRINATE
     Indication: Morning sickness
     Dosage: 50 MG
     Route: 042
  7. DIMENHYDRINATE [Suspect]
     Active Substance: DIMENHYDRINATE
     Indication: Nausea
     Dosage: UNK
     Route: 042
  8. DIMENHYDRINATE [Suspect]
     Active Substance: DIMENHYDRINATE
     Indication: Antiemetic supportive care
     Dosage: UNK
     Route: 048
  9. DIMENHYDRINATE [Suspect]
     Active Substance: DIMENHYDRINATE
     Indication: Vomiting
     Dosage: UNK
     Route: 065
  10. DEXTROSE [Suspect]
     Active Substance: DEXTROSE\DEXTROSE MONOHYDRATE
     Indication: Serotonin syndrome
     Dosage: UNK
     Route: 041
  11. DEXTROSE [Suspect]
     Active Substance: DEXTROSE\DEXTROSE MONOHYDRATE
     Indication: Sinus tachycardia
     Dosage: UNK
     Route: 042
  12. DEXTROSE [Suspect]
     Active Substance: DEXTROSE\DEXTROSE MONOHYDRATE
     Dosage: UNK
     Route: 065
  13. DEXTROSE [Suspect]
     Active Substance: DEXTROSE\DEXTROSE MONOHYDRATE
     Dosage: UNK ROUTE OF ADMIN (FREE TEXT): INTRAVENOUS DRIP
     Route: 065
  14. DOXYLAMINE [Suspect]
     Active Substance: DOXYLAMINE
     Dosage: 10 MG, BID
     Route: 048
  15. DOXYLAMINE [Suspect]
     Active Substance: DOXYLAMINE
     Dosage: 20 MG, QD
     Route: 048
  16. DOXYLAMINE [Suspect]
     Active Substance: DOXYLAMINE
     Indication: Antiemetic supportive care
     Dosage: UNK
     Route: 048
  17. DOXYLAMINE SUCCINATE\PYRIDOXINE HYDROCHLORIDE [Suspect]
     Active Substance: DOXYLAMINE SUCCINATE\PYRIDOXINE HYDROCHLORIDE
     Indication: Morning sickness
     Dosage: 1 DOSAGE FORM
     Route: 048
  18. DOXYLAMINE SUCCINATE\PYRIDOXINE HYDROCHLORIDE [Suspect]
     Active Substance: DOXYLAMINE SUCCINATE\PYRIDOXINE HYDROCHLORIDE
     Indication: Vomiting
     Dosage: 10 MG, Q12H
     Route: 048
  19. DOXYLAMINE SUCCINATE\PYRIDOXINE HYDROCHLORIDE [Suspect]
     Active Substance: DOXYLAMINE SUCCINATE\PYRIDOXINE HYDROCHLORIDE
     Indication: Nausea
     Dosage: 20 MG, QD
     Route: 048
  20. DOXYLAMINE SUCCINATE\PYRIDOXINE HYDROCHLORIDE [Suspect]
     Active Substance: DOXYLAMINE SUCCINATE\PYRIDOXINE HYDROCHLORIDE
     Indication: Hyperemesis gravidarum
     Dosage: 40 MG, QD
     Route: 048
  21. DOXYLAMINE SUCCINATE\PYRIDOXINE HYDROCHLORIDE [Suspect]
     Active Substance: DOXYLAMINE SUCCINATE\PYRIDOXINE HYDROCHLORIDE
     Indication: Antiemetic supportive care
     Dosage: UNK, TID
     Route: 048
  22. DOXYLAMINE SUCCINATE\PYRIDOXINE HYDROCHLORIDE [Suspect]
     Active Substance: DOXYLAMINE SUCCINATE\PYRIDOXINE HYDROCHLORIDE
     Indication: Hyperemesis gravidarum
     Dosage: 10 MG, QID
     Route: 048
  23. DOXYLAMINE SUCCINATE\PYRIDOXINE HYDROCHLORIDE [Suspect]
     Active Substance: DOXYLAMINE SUCCINATE\PYRIDOXINE HYDROCHLORIDE
     Indication: Morning sickness
     Dosage: 10 MG
     Route: 048
  24. DOXYLAMINE SUCCINATE\PYRIDOXINE HYDROCHLORIDE [Suspect]
     Active Substance: DOXYLAMINE SUCCINATE\PYRIDOXINE HYDROCHLORIDE
     Indication: Vomiting
     Dosage: 20 MG
     Route: 048
  25. DOXYLAMINE SUCCINATE\PYRIDOXINE HYDROCHLORIDE [Suspect]
     Active Substance: DOXYLAMINE SUCCINATE\PYRIDOXINE HYDROCHLORIDE
     Indication: Nausea
     Dosage: UNK
     Route: 048
  26. FAMOTIDINE [Suspect]
     Active Substance: FAMOTIDINE
     Indication: Morning sickness
     Dosage: 20 MG
     Route: 042
  27. FAMOTIDINE [Suspect]
     Active Substance: FAMOTIDINE
     Indication: Hyperemesis gravidarum
     Dosage: 20 MG, QD
     Route: 042
  28. FAMOTIDINE [Suspect]
     Active Substance: FAMOTIDINE
     Dosage: 20 MG, QD
     Route: 042
  29. FAMOTIDINE [Suspect]
     Active Substance: FAMOTIDINE
     Indication: Vomiting
     Dosage: UNK
     Route: 042
  30. FAMOTIDINE [Suspect]
     Active Substance: FAMOTIDINE
     Indication: Nausea
     Dosage: UNK
     Route: 048
  31. FAMOTIDINE [Suspect]
     Active Substance: FAMOTIDINE
     Dosage: UNK
     Route: 065
  32. LORAZEPAM [Suspect]
     Active Substance: LORAZEPAM
     Indication: Serotonin syndrome
     Dosage: 1 G
     Route: 042
  33. LORAZEPAM [Suspect]
     Active Substance: LORAZEPAM
     Dosage: 1 G
     Route: 048
  34. LORAZEPAM [Suspect]
     Active Substance: LORAZEPAM
     Dosage: 1 MG
     Route: 042
  35. LORAZEPAM [Suspect]
     Active Substance: LORAZEPAM
     Dosage: 1 MG
     Route: 042
  36. LORAZEPAM [Suspect]
     Active Substance: LORAZEPAM
     Dosage: 1 MG
     Route: 048
  37. LORAZEPAM [Suspect]
     Active Substance: LORAZEPAM
     Dosage: 2 G
     Route: 042
  38. LORAZEPAM [Suspect]
     Active Substance: LORAZEPAM
     Dosage: 2 MG, QID
     Route: 042
  39. LORAZEPAM [Suspect]
     Active Substance: LORAZEPAM
     Dosage: UNK
     Route: 042
  40. LORAZEPAM [Suspect]
     Active Substance: LORAZEPAM
     Dosage: UNK
     Route: 042
  41. LORAZEPAM [Suspect]
     Active Substance: LORAZEPAM
     Dosage: UNK
     Route: 048
  42. METOCLOPRAMIDE [Suspect]
     Active Substance: METOCLOPRAMIDE
     Indication: Product used for unknown indication
     Dosage: UNK
     Route: 065
  43. ONDANSETRON [Suspect]
     Active Substance: ONDANSETRON
     Indication: Antiemetic supportive care
     Dosage: 8 MG, Q8H
     Route: 042
  44. ONDANSETRON [Suspect]
     Active Substance: ONDANSETRON
     Indication: Morning sickness
     Dosage: 8 MG
     Route: 042
  45. ONDANSETRON [Suspect]
     Active Substance: ONDANSETRON
     Dosage: 8 MG
     Route: 065
  46. ONDANSETRON [Suspect]
     Active Substance: ONDANSETRON
     Indication: Nausea
     Dosage: UNK
     Route: 042
  47. ONDANSETRON [Suspect]
     Active Substance: ONDANSETRON
     Indication: Hyperemesis gravidarum
     Dosage: UNK
     Route: 065
  48. ONDANSETRON [Suspect]
     Active Substance: ONDANSETRON
     Indication: Vomiting
     Dosage: UNK
     Route: 065
  49. ONDANSETRON [Suspect]
     Active Substance: ONDANSETRON
     Dosage: UNK
     Route: 065
  50. ONDANSETRON HYDROCHLORIDE [Suspect]
     Active Substance: ONDANSETRON HYDROCHLORIDE
     Indication: Nausea
     Dosage: 8 MG
     Route: 042
  51. ONDANSETRON HYDROCHLORIDE [Suspect]
     Active Substance: ONDANSETRON HYDROCHLORIDE
     Indication: Hyperemesis gravidarum
     Dosage: UNK
     Route: 048
  52. ONDANSETRON HYDROCHLORIDE [Suspect]
     Active Substance: ONDANSETRON HYDROCHLORIDE
     Indication: Vomiting
  53. PROCHLORPERAZINE [Suspect]
     Active Substance: PROCHLORPERAZINE
     Dosage: 10 MG, Q6H
     Route: 048
  54. PROCHLORPERAZINE [Suspect]
     Active Substance: PROCHLORPERAZINE
     Indication: Morning sickness
     Dosage: 10 MG, QID
     Route: 048
  55. PROCHLORPERAZINE [Suspect]
     Active Substance: PROCHLORPERAZINE
     Dosage: 10 MG
     Route: 048
  56. PROCHLORPERAZINE [Suspect]
     Active Substance: PROCHLORPERAZINE
     Indication: Nausea
     Dosage: 5 MG, Q6H
     Route: 048
  57. PROCHLORPERAZINE [Suspect]
     Active Substance: PROCHLORPERAZINE
     Indication: Antiemetic supportive care
     Dosage: 5 MG, QID
     Route: 048
  58. PROCHLORPERAZINE [Suspect]
     Active Substance: PROCHLORPERAZINE
     Dosage: 5 MG
     Route: 048
  59. PROCHLORPERAZINE [Suspect]
     Active Substance: PROCHLORPERAZINE
     Indication: Hyperemesis gravidarum
     Dosage: UNK
     Route: 048
  60. PROCHLORPERAZINE [Suspect]
     Active Substance: PROCHLORPERAZINE
     Indication: Vomiting
     Dosage: UNK
     Route: 048
  61. PROCHLORPERAZINE [Suspect]
     Active Substance: PROCHLORPERAZINE
     Dosage: UNK
     Route: 048
  62. PYRIDOXINE [Suspect]
     Active Substance: PYRIDOXINE
     Indication: Morning sickness
     Dosage: 10 MG, BID
     Route: 048
  63. PYRIDOXINE [Suspect]
     Active Substance: PYRIDOXINE
     Dosage: 20 MG, QD
     Route: 048
  64. PYRIDOXINE [Suspect]
     Active Substance: PYRIDOXINE
     Indication: Vomiting
     Dosage: 1 DOSAGE FORM
     Route: 048
  65. PYRIDOXINE [Suspect]
     Active Substance: PYRIDOXINE
     Indication: Antiemetic supportive care
     Dosage: UNK
     Route: 048
  66. PYRIDOXINE [Suspect]
     Active Substance: PYRIDOXINE
     Indication: Nausea
     Dosage: UNK, TID
     Route: 048
  67. SODIUM BICARBONATE [Suspect]
     Active Substance: SODIUM BICARBONATE
     Indication: Serotonin syndrome
     Dosage: 3 DOSAGE FORM
     Route: 042
  68. SODIUM BICARBONATE [Suspect]
     Active Substance: SODIUM BICARBONATE
     Indication: Sinus tachycardia
     Dosage: UNK
     Route: 065
  69. SUMATRIPTAN [Suspect]
     Active Substance: SUMATRIPTAN
     Dosage: 1 DOSAGE FORM
     Route: 048
  70. SUMATRIPTAN [Suspect]
     Active Substance: SUMATRIPTAN
     Dosage: 50 MG (ONCE)
     Route: 048
  71. SUMATRIPTAN [Suspect]
     Active Substance: SUMATRIPTAN
     Indication: Migraine
     Dosage: UNK
     Route: 065
  72. SUMATRIPTAN [Suspect]
     Active Substance: SUMATRIPTAN
     Dosage: UNK
     Route: 065
  73. SUMATRIPTAN SUCCINATE [Suspect]
     Active Substance: SUMATRIPTAN SUCCINATE
     Dosage: 1 DOSAGE FORM
     Route: 048
  74. SUMATRIPTAN SUCCINATE [Suspect]
     Active Substance: SUMATRIPTAN SUCCINATE
     Indication: Migraine
     Dosage: 50 MG
     Route: 048
  75. SUMATRIPTAN SUCCINATE [Suspect]
     Active Substance: SUMATRIPTAN SUCCINATE
     Dosage: UNK
     Route: 065
  76. SUMATRIPTAN SUCCINATE [Suspect]
     Active Substance: SUMATRIPTAN SUCCINATE
     Dosage: UNK
     Route: 065

REACTIONS (27)
  - Clonus [Recovered/Resolved]
  - Muscle spasticity [Recovered/Resolved]
  - Foetal heart rate abnormal [Recovered/Resolved]
  - Muscle contractions involuntary [Recovered/Resolved]
  - Sinus tachycardia [Recovered/Resolved]
  - Extensor plantar response [Recovered/Resolved]
  - Human chorionic gonadotropin decreased [Recovered/Resolved]
  - C-reactive protein abnormal [Recovered/Resolved]
  - Blood lactic acid increased [Recovered/Resolved]
  - Tremor [Recovered/Resolved]
  - Myalgia [Recovered/Resolved]
  - Hypertonia [Recovered/Resolved]
  - Hyperhidrosis [Recovered/Resolved]
  - Emotional distress [Recovered/Resolved]
  - Tachycardia [Recovered/Resolved]
  - Exposure during pregnancy [Unknown]
  - Pyrexia [Recovered/Resolved]
  - Hyperreflexia [Recovered/Resolved]
  - Abortion spontaneous [Recovered/Resolved]
  - Serotonin syndrome [Recovered/Resolved]
  - Drug ineffective [Recovered/Resolved]
  - Body temperature increased [Recovered/Resolved]
  - Anaphylactic reaction [Recovered/Resolved]
  - Maternal exposure during pregnancy [Unknown]
  - Drug ineffective for unapproved indication [Recovered/Resolved]
  - Therapy non-responder [Recovered/Resolved]
  - Off label use [Recovered/Resolved]
